FAERS Safety Report 4700591-7 (Version None)
Quarter: 2005Q2

REPORT INFORMATION
  Report Type: 
  Country: None (occurrence: None)
  Receive Date: 20050627
  Receipt Date: 20050615
  Transmission Date: 20051028
  Serious: Yes (Other)
  Sender: FDA-Public Use
  Company Number: 2005-06-0930

PATIENT
  Sex: Female

DRUGS (1)
  1. AERIUS (DESLORATADINE) TABLETS [Suspect]

REACTIONS (2)
  - ANOSMIA [None]
  - DISEASE RECURRENCE [None]
